FAERS Safety Report 15671588 (Version 1)
Quarter: 2018Q4

REPORT INFORMATION
  Report Type: Report from Study
  Country: US (occurrence: US)
  Receive Date: 20181129
  Receipt Date: 20181129
  Transmission Date: 20190205
  Serious: No
  Sender: FDA-Public Use
  Company Number: US-TESARO-US-2018TSO04082

PATIENT
  Age: 64 Year
  Sex: Female

DRUGS (3)
  1. ZEJULA [Suspect]
     Active Substance: NIRAPARIB
     Dosage: 200 MG, QPM (NOON)
     Route: 048
  2. ZEJULA [Suspect]
     Active Substance: NIRAPARIB
     Indication: OVARIAN CANCER
     Dosage: 300 MG, QD
     Route: 048
     Dates: start: 20180801
  3. ZEJULA [Suspect]
     Active Substance: NIRAPARIB
     Dosage: 200 MG, QD
     Route: 048
     Dates: start: 20180808

REACTIONS (10)
  - Fatigue [Recovering/Resolving]
  - Blood pressure increased [Recovering/Resolving]
  - Constipation [Not Recovered/Not Resolved]
  - Unevaluable event [Not Recovered/Not Resolved]
  - Platelet count decreased [Not Recovered/Not Resolved]
  - Negative thoughts [Not Recovered/Not Resolved]
  - Nausea [Recovered/Resolved]
  - Melanocytic naevus [Recovered/Resolved]
  - Middle insomnia [Not Recovered/Not Resolved]
  - Product dose omission [Unknown]

NARRATIVE: CASE EVENT DATE: 201808
